FAERS Safety Report 14225883 (Version 2)
Quarter: 2018Q2

REPORT INFORMATION
  Report Type: Spontaneous
  Country: FR (occurrence: FR)
  Receive Date: 20171127
  Receipt Date: 20180404
  Transmission Date: 20180711
  Serious: Yes (Death, Other)
  Sender: FDA-Public Use
  Company Number: FR-ASTRAZENECA-2017SF09794

PATIENT
  Age: 35 Year
  Sex: Male

DRUGS (2)
  1. LYNPARZA [Suspect]
     Active Substance: OLAPARIB
     Indication: GLIOBLASTOMA
     Route: 048
  2. LYNPARZA [Suspect]
     Active Substance: OLAPARIB
     Indication: GLIOBLASTOMA
     Route: 048
     Dates: start: 201708

REACTIONS (4)
  - Malignant neoplasm progression [Fatal]
  - Product use in unapproved indication [Unknown]
  - Metastases to meninges [Unknown]
  - Off label use [Unknown]
